FAERS Safety Report 10689091 (Version 1)
Quarter: 2015Q1

REPORT INFORMATION
  Report Type: Spontaneous
  Country: VE (occurrence: VE)
  Receive Date: 20150104
  Receipt Date: 20150104
  Transmission Date: 20150720
  Serious: Yes (Death, Hospitalization)
  Sender: FDA-Public Use
  Company Number: PHHY2014VE170324

PATIENT
  Age: 28 Year
  Sex: Male

DRUGS (9)
  1. CLOZAPINE. [Suspect]
     Active Substance: CLOZAPINE
     Dosage: 500 MG, QD
     Route: 065
  2. CLONAZEPAM. [Suspect]
     Active Substance: CLONAZEPAM
     Indication: SCHIZOAFFECTIVE DISORDER
  3. CLOZAPINE. [Suspect]
     Active Substance: CLOZAPINE
     Indication: SCHIZOAFFECTIVE DISORDER
     Dosage: 50 MG, QD
     Route: 065
     Dates: start: 201311
  4. CLOZAPINE. [Suspect]
     Active Substance: CLOZAPINE
     Indication: BIPOLAR DISORDER
     Dosage: 6 MG, QD
     Route: 065
  5. QUETIAPINE [Suspect]
     Active Substance: QUETIAPINE
     Indication: BIPOLAR DISORDER
     Dosage: 900 MG, QD
     Route: 065
  6. OXCARBAZEPINE. [Suspect]
     Active Substance: OXCARBAZEPINE
     Indication: BIPOLAR DISORDER
     Dosage: 1200 MG, QD
     Route: 065
     Dates: end: 201401
  7. PALIPERIDONE [Suspect]
     Active Substance: PALIPERIDONE
     Indication: SCHIZOAFFECTIVE DISORDER
     Dosage: 6 MG, UNK
     Dates: start: 201312, end: 201401
  8. CLOZAPINE. [Suspect]
     Active Substance: CLOZAPINE
     Dosage: 200 MG, QD
     Route: 065
  9. CLONAZEPAM. [Suspect]
     Active Substance: CLONAZEPAM
     Indication: BIPOLAR DISORDER
     Dosage: 6 MG, QD
     Route: 065

REACTIONS (10)
  - Intestinal dilatation [Fatal]
  - Colitis ischaemic [Fatal]
  - Septic embolus [Fatal]
  - Abdominal distension [Fatal]
  - Pyrexia [Fatal]
  - Pulmonary embolism [Fatal]
  - Therapeutic response decreased [Unknown]
  - Gastrointestinal necrosis [Fatal]
  - Dyspnoea [Fatal]
  - Abdominal pain [Fatal]
